FAERS Safety Report 7444456-9 (Version None)
Quarter: 2011Q2

REPORT INFORMATION
  Report Type: 
  Country: None (occurrence: None)
  Receive Date: 20110429
  Receipt Date: 20110415
  Transmission Date: 20111010
  Serious: Yes (Hospitalization)
  Sender: FDA-Public Use
  Company Number: AT-MYLANLABS-2011S1007798

PATIENT
  Age: 55 Year
  Sex: Female
  Weight: 54 kg

DRUGS (1)
  1. CITALOPRAM [Suspect]
     Indication: DEPRESSION

REACTIONS (3)
  - CHOLESTASIS [None]
  - LIVER INJURY [None]
  - HEPATITIS CHOLESTATIC [None]
